FAERS Safety Report 8049094-5 (Version None)
Quarter: 2012Q1

REPORT INFORMATION
  Report Type: 
  Country: None (occurrence: None)
  Receive Date: 20120117
  Receipt Date: 20120110
  Transmission Date: 20120608
  Serious: Yes (Death)
  Sender: FDA-Public Use
  Company Number: KR-PFIZER INC-2011314957

PATIENT
  Age: 62 Year
  Sex: Female

DRUGS (2)
  1. PREDNISOLONE [Concomitant]
     Dosage: 10 MG, /DAILY
  2. VORICONAZOLE [Suspect]
     Indication: ASPERGILLOSIS
     Dosage: TWO LOADING DOSES OF 6 MG/KG, THEN 4 MG/KG EVERY 12 H
     Route: 042

REACTIONS (1)
  - HYPONATRAEMIA [None]
